FAERS Safety Report 25008159 (Version 4)
Quarter: 2025Q2

REPORT INFORMATION
  Report Type: Report from Study
  Country: US (occurrence: US)
  Receive Date: 20250225
  Receipt Date: 20250519
  Transmission Date: 20250716
  Serious: Yes (Hospitalization, Disabling, Other)
  Sender: SUNOVION
  Company Number: US-SMPA-2025SPA001988

PATIENT

DRUGS (4)
  1. ORGOVYX [Suspect]
     Active Substance: RELUGOLIX
     Indication: Prostate cancer
     Route: 048
     Dates: start: 20230314
  2. ORGOVYX [Suspect]
     Active Substance: RELUGOLIX
     Dosage: 120 MG, QD
     Route: 048
     Dates: start: 20250212
  3. ELIQUIS [Concomitant]
     Active Substance: APIXABAN
     Indication: Anticoagulant therapy
     Dosage: 2.5 MG, QD
     Route: 048
     Dates: start: 20250215
  4. VITAMIN D [Concomitant]
     Active Substance: VITAMIN D NOS
     Indication: Vitamin D decreased
     Route: 065

REACTIONS (8)
  - Fall [Unknown]
  - Ankle fracture [Unknown]
  - Dementia [Not Recovered/Not Resolved]
  - Atrial fibrillation [Unknown]
  - Dehydration [Unknown]
  - Confusional state [Unknown]
  - Emotional disorder [Unknown]
  - Urinary tract infection [Unknown]
